FAERS Safety Report 7332757-4 (Version None)
Quarter: 2011Q1

REPORT INFORMATION
  Report Type: 
  Country: None (occurrence: None)
  Receive Date: 20110222
  Receipt Date: 20110209
  Transmission Date: 20110831
  Serious: Yes (Hospitalization, Other)
  Sender: FDA-Public Use
  Company Number: 2011MA001243

PATIENT
  Age: 57 Year
  Sex: Female

DRUGS (5)
  1. OMEPRAZOLE [Concomitant]
  2. URSODIOL [Concomitant]
  3. ERGOCALCIFEROL [Concomitant]
  4. WARFARIN [Concomitant]
  5. RIFAMPIN [Suspect]
     Indication: PRURITUS
     Dosage: 300 MG; BID; PO
     Route: 048

REACTIONS (3)
  - INTERNATIONAL NORMALISED RATIO INCREASED [None]
  - DRUG INTERACTION [None]
  - COAGULOPATHY [None]
